FAERS Safety Report 9536005 (Version 2)
Quarter: 2013Q4

REPORT INFORMATION
  Report Type: Spontaneous
  Country: US (occurrence: US)
  Receive Date: 20130919
  Receipt Date: 20131002
  Transmission Date: 20140711
  Serious: No
  Sender: FDA-Public Use
  Company Number: US-PFIZER INC-2013265037

PATIENT
  Age: 31 Year
  Sex: Female
  Weight: 58.96 kg

DRUGS (1)
  1. DEPO-PROVERA [Suspect]
     Indication: CONTRACEPTION
     Dosage: UNK
     Route: 030
     Dates: start: 2007, end: 201302

REACTIONS (4)
  - Breast pain [Not Recovered/Not Resolved]
  - Vitamin D decreased [Unknown]
  - Breast induration [Unknown]
  - Amenorrhoea [Not Recovered/Not Resolved]
